FAERS Safety Report 7511807-6 (Version None)
Quarter: 2011Q2

REPORT INFORMATION
  Report Type: 
  Country: None (occurrence: None)
  Receive Date: 20110531
  Receipt Date: 20110523
  Transmission Date: 20111010
  Serious: Yes (Death)
  Sender: FDA-Public Use
  Company Number: FR-JNJFOC-20090807855

PATIENT
  Age: 5 Month

DRUGS (3)
  1. BACTRIM [Concomitant]
     Dosage: (ONE MEASURING SPOON TWICE DAILY)
     Route: 065
  2. CLOFOCTOL [Concomitant]
     Route: 054
  3. LOPERAMIDE HCL [Suspect]
     Indication: ILL-DEFINED DISORDER
     Route: 048

REACTIONS (9)
  - SCREAMING [None]
  - CARDIAC ARREST [None]
  - DEATH [None]
  - HYPOTHERMIA [None]
  - OCULOGYRIC CRISIS [None]
  - LYMPHOCYTOSIS [None]
  - HYPOKINESIA [None]
  - COMA [None]
  - MONOCYTOSIS [None]
